FAERS Safety Report 7913145-6 (Version None)
Quarter: 2011Q4

REPORT INFORMATION
  Report Type: 
  Country: None (occurrence: None)
  Receive Date: 20111114
  Receipt Date: 20111031
  Transmission Date: 20120403
  Serious: Yes (Hospitalization)
  Sender: FDA-Public Use
  Company Number: US-ELI_LILLY_AND_COMPANY-US201002001463

PATIENT
  Sex: Female

DRUGS (4)
  1. FORTEO [Suspect]
     Dosage: 20 UG, DAILY (1/D)
     Route: 058
  2. FORTEO [Suspect]
     Indication: OSTEOPOROSIS
     Dosage: 20 UG, DAILY (1/D)
     Route: 058
     Dates: start: 20090911
  3. FORTEO [Suspect]
     Dosage: 20 UG, QD
     Route: 058
  4. FORTEO [Suspect]
     Dosage: 20 UG, QD
     Route: 058

REACTIONS (6)
  - MUSCULOSKELETAL PAIN [None]
  - BONE PAIN [None]
  - BONE DENSITY DECREASED [None]
  - ARTHROPATHY [None]
  - KNEE ARTHROPLASTY [None]
  - FATIGUE [None]
